FAERS Safety Report 14858109 (Version 1)
Quarter: 2018Q2

REPORT INFORMATION
  Report Type: Spontaneous
  Country: BG (occurrence: BG)
  Receive Date: 20180508
  Receipt Date: 20180508
  Transmission Date: 20180711
  Serious: Yes (Death)
  Sender: FDA-Public Use
  Company Number: BG-BAXTER-2018BAX013043

PATIENT
  Age: 2 Year
  Sex: Female

DRUGS (4)
  1. MANNITOL BAXTER 10% SOLUTION FOR INFUSION [Suspect]
     Active Substance: MANNITOL
     Indication: PRODUCT USED FOR UNKNOWN INDICATION
     Route: 065
  2. DEXAMETHASONE. [Suspect]
     Active Substance: DEXAMETHASONE
     Indication: PRODUCT USED FOR UNKNOWN INDICATION
     Dosage: 2 MG/KG, QD
     Route: 065
  3. OSELTAMIVIR [Suspect]
     Active Substance: OSELTAMIVIR
     Indication: PRODUCT USED FOR UNKNOWN INDICATION
     Route: 065
  4. ACICLOVIR [Suspect]
     Active Substance: ACYCLOVIR
     Indication: INFLUENZA
     Route: 065

REACTIONS (6)
  - Blood lactate dehydrogenase increased [None]
  - Coma [Fatal]
  - Alanine aminotransferase increased [None]
  - Blood creatine phosphokinase MB increased [None]
  - Aspartate aminotransferase increased [None]
  - Blood glucose increased [None]

NARRATIVE: CASE EVENT DATE: 2016
